FAERS Safety Report 19225679 (Version 1)
Quarter: 2021Q2

REPORT INFORMATION
  Report Type: Spontaneous
  Country: LT (occurrence: LT)
  Receive Date: 20210506
  Receipt Date: 20210506
  Transmission Date: 20210717
  Serious: Yes (Hospitalization)
  Sender: FDA-Public Use
  Company Number: LT-TEVA-2021-LT-1907721

PATIENT
  Age: 57 Year
  Sex: Male
  Weight: 90 kg

DRUGS (2)
  1. QUETIAPIN [Suspect]
     Active Substance: QUETIAPINE
     Dosage: 30 TABLETS OF QUETIAPIN AND 10 TABLETS OF CLONAZEPAM WERE CONSUMED BY PATIENT
     Route: 048
     Dates: start: 20210330, end: 20210330
  2. CLONAZEPAM. [Suspect]
     Active Substance: CLONAZEPAM
     Dosage: 30 TABLETS OF QUETIAPIN AND 10 TABLETS OF CLONAZEPAM WERE CONSUMED BY PATIENT
     Route: 048
     Dates: start: 20210330, end: 20210330

REACTIONS (3)
  - Intentional overdose [Recovered/Resolved]
  - Suicide attempt [Recovered/Resolved]
  - Stupor [Recovered/Resolved]

NARRATIVE: CASE EVENT DATE: 20210330
